FAERS Safety Report 6313503-X (Version None)
Quarter: 2009Q3

REPORT INFORMATION
  Report Type: 
  Country: None (occurrence: None)
  Receive Date: 20090818
  Receipt Date: 20090811
  Transmission Date: 20100115
  Serious: Yes (Death, Life-Threatening, Other)
  Sender: FDA-Public Use
  Company Number: ES-CELGENEUS-144-21880-09080955

PATIENT
  Age: 61 Year
  Sex: Male

DRUGS (5)
  1. REVLIMID [Suspect]
     Indication: MULTIPLE MYELOMA
     Route: 048
     Dates: start: 20080114, end: 20080331
  2. REVLIMID [Suspect]
     Dosage: DOSE REDUCED
     Route: 048
  3. DEXAMETHASONE [Suspect]
     Indication: DRUG USE FOR UNKNOWN INDICATION
     Route: 065
  4. ANTICOAGULANT [Suspect]
     Indication: THROMBOSIS PROPHYLAXIS
     Route: 048
  5. ANTICOAGULANT [Suspect]
     Dosage: OVERDOSE
     Dates: start: 20080118, end: 20080118

REACTIONS (8)
  - ANAEMIA [None]
  - BLOOD LACTATE DEHYDROGENASE INCREASED [None]
  - CARDIAC FAILURE [None]
  - FEBRILE NEUTROPENIA [None]
  - HYPOTHYROIDISM [None]
  - NEUTROPENIA [None]
  - OVERDOSE [None]
  - THROMBOCYTOPENIA [None]
